FAERS Safety Report 12474051 (Version 2)
Quarter: 2016Q3

REPORT INFORMATION
  Report Type: Spontaneous
  Country: US (occurrence: US)
  Receive Date: 20160616
  Receipt Date: 20160808
  Transmission Date: 20161109
  Serious: No
  Sender: FDA-Public Use
  Company Number: US-ASTRAZENECA-2016SE56309

PATIENT
  Age: 24288 Day
  Sex: Female
  Weight: 50.8 kg

DRUGS (5)
  1. SYMBICORT [Suspect]
     Active Substance: BUDESONIDE\FORMOTEROL FUMARATE DIHYDRATE
     Indication: OESOPHAGEAL DISCOMFORT
     Dosage: ONE DOSE (2 PUFFS) OF SYMBICORT 80/4.5 MCG ONE DOSE (2 PUFFS)
     Route: 055
     Dates: start: 20160420
  2. CALCIUM [Concomitant]
     Active Substance: CALCIUM
  3. SYMBICORT [Suspect]
     Active Substance: BUDESONIDE\FORMOTEROL FUMARATE DIHYDRATE
     Indication: OESOPHAGEAL DISORDER
     Dosage: ONE DOSE (2 PUFFS) OF SYMBICORT 80/4.5 MCG ONE DOSE (2 PUFFS)
     Route: 055
     Dates: start: 20160420
  4. SYMBICORT [Suspect]
     Active Substance: BUDESONIDE\FORMOTEROL FUMARATE DIHYDRATE
     Indication: DECREASED IMMUNE RESPONSIVENESS
     Dosage: ONE DOSE (2 PUFFS) OF SYMBICORT 80/4.5 MCG ONE DOSE (2 PUFFS)
     Route: 055
     Dates: start: 20160420
  5. VITAMIN D [Concomitant]
     Active Substance: CHOLECALCIFEROL

REACTIONS (7)
  - Blood pressure increased [Unknown]
  - Off label use [Unknown]
  - Vision blurred [Unknown]
  - Upper-airway cough syndrome [Unknown]
  - Visual impairment [Unknown]
  - Product use issue [Unknown]
  - Heart rate increased [Unknown]

NARRATIVE: CASE EVENT DATE: 20160420
